FAERS Safety Report 23730417 (Version 3)
Quarter: 2024Q4

REPORT INFORMATION
  Report Type: Spontaneous
  Country: MA (occurrence: MA)
  Receive Date: 20240411
  Receipt Date: 20241028
  Transmission Date: 20250115
  Serious: Yes (Death, Life-Threatening, Hospitalization)
  Sender: STRIDES
  Company Number: MA-STRIDES ARCOLAB LIMITED-2024SP004050

PATIENT
  Age: 75 Year
  Sex: Male

DRUGS (1)
  1. METHOTREXATE [Suspect]
     Active Substance: METHOTREXATE
     Indication: Rheumatoid arthritis
     Dosage: 12.5 MICROGRAM, ONCE A WEEK
     Route: 065

REACTIONS (6)
  - Interstitial lung disease [Fatal]
  - Cardiac failure acute [Fatal]
  - Acute respiratory failure [Fatal]
  - Pulmonary toxicity [Fatal]
  - Toxicity to various agents [Fatal]
  - Pulmonary hypertension [Unknown]
